FAERS Safety Report 5330898-4 (Version None)
Quarter: 2007Q2

REPORT INFORMATION
  Report Type: 
  Country: None (occurrence: None)
  Receive Date: 20070227
  Receipt Date: 20060118
  Transmission Date: 20071010
  Serious: Yes (Hospitalization)
  Sender: FDA-Public Use
  Company Number: 432816

PATIENT
  Age: 29 Year
  Sex: Female
  Weight: 53.1 kg

DRUGS (1)
  1. ACCUTANE [Suspect]
     Indication: ACNE
     Dosage: 40 MG 1 PER DAY ORAL
     Route: 048
     Dates: start: 19990302, end: 20001004

REACTIONS (10)
  - ACNE [None]
  - ANAEMIA [None]
  - ANXIETY [None]
  - ARTHRITIS [None]
  - COLITIS ULCERATIVE [None]
  - DEPRESSION [None]
  - INFERTILITY [None]
  - INFLAMMATORY BOWEL DISEASE [None]
  - LIP DRY [None]
  - SPONDYLITIS [None]
